FAERS Safety Report 4562763-4 (Version None)
Quarter: 2005Q1

REPORT INFORMATION
  Report Type: 
  Country: None (occurrence: None)
  Receive Date: 20050121
  Receipt Date: 20050110
  Transmission Date: 20050727
  Serious: No
  Sender: FDA-Public Use
  Company Number: 2005AP00084

PATIENT
  Age: 40 Year
  Sex: Female

DRUGS (4)
  1. SEROQUEL [Suspect]
  2. LEXAPRO [Concomitant]
  3. EDRONAX [Concomitant]
  4. EPILIM [Concomitant]

REACTIONS (1)
  - TIC [None]
